FAERS Safety Report 11985461 (Version 3)
Quarter: 2017Q1

REPORT INFORMATION
  Report Type: Report from Study
  Country: US (occurrence: US)
  Receive Date: 20160201
  Receipt Date: 20170117
  Transmission Date: 20170428
  Serious: Yes (Death, Hospitalization, Other)
  Sender: FDA-Public Use
  Company Number: US-TAKEDA-2016TUS001541

PATIENT
  Sex: Female

DRUGS (17)
  1. CYANOCOBALAMINE [Concomitant]
     Active Substance: CYANOCOBALAMIN
     Dosage: 1000 ?G, UNK
  2. VITAMIN A                          /00056001/ [Concomitant]
     Active Substance: RETINOL
     Dosage: UNK, QD
     Route: 048
  3. FOSAMAX [Concomitant]
     Active Substance: ALENDRONATE SODIUM
     Dosage: 70 MG, UNK
     Route: 048
  4. DITROPAN [Concomitant]
     Active Substance: OXYBUTYNIN CHLORIDE
     Dosage: 5 MG, BID
  5. NEURONTIN [Concomitant]
     Active Substance: GABAPENTIN
     Dosage: 300 MG, BID
  6. PRILOSEC [Concomitant]
     Active Substance: OMEPRAZOLE MAGNESIUM
     Dosage: 20 MG, QD
  7. LOMOTIL [Concomitant]
     Active Substance: ATROPINE SULFATE\DIPHENOXYLATE HYDROCHLORIDE
     Indication: DIARRHOEA
     Dosage: UNK UNK, QID
     Route: 048
  8. QUESTRAN [Concomitant]
     Active Substance: CHOLESTYRAMINE
     Dosage: 4 G, TID
  9. IMODIUM [Concomitant]
     Active Substance: LOPERAMIDE HYDROCHLORIDE
     Dosage: 2 MG, QID
     Route: 048
  10. PREVALITE [Concomitant]
     Active Substance: CHOLESTYRAMINE
     Dosage: 4 G, TID
  11. VITAMIN D [Concomitant]
     Active Substance: CHOLECALCIFEROL
     Dosage: UNK
     Route: 048
  12. ROCALTROL [Concomitant]
     Active Substance: CALCITRIOL
     Dosage: 0.25 ?G, QD
     Route: 048
  13. TUMS                               /00193601/ [Concomitant]
     Active Substance: CALCIUM CARBONATE\MAGNESIUM CARBONATE\MAGNESIUM TRISILICATE
     Dosage: UNK UNK, TID
  14. OSCAL 500+D [Concomitant]
     Dosage: UNK, QD
     Route: 048
  15. VEDOLIZUMAB [Suspect]
     Active Substance: VEDOLIZUMAB
     Indication: CROHN^S DISEASE
     Dosage: 300 MG, UNK
     Route: 042
     Dates: start: 20141128
  16. LOPRESSOR [Concomitant]
     Active Substance: METOPROLOL TARTRATE
     Dosage: UNK UNK, BID
  17. HYOSCYAMINE. [Concomitant]
     Active Substance: HYOSCYAMINE
     Indication: ABDOMINAL PAIN UPPER
     Dosage: 0.125 MG, UNK

REACTIONS (4)
  - Pneumonia aspiration [Fatal]
  - Oesophageal candidiasis [Unknown]
  - Acute respiratory failure [Fatal]
  - Intestinal obstruction [Unknown]
